FAERS Safety Report 9904295 (Version 1)
Quarter: 2014Q1

REPORT INFORMATION
  Report Type: Spontaneous
  Country: FR (occurrence: FR)
  Receive Date: 20140218
  Receipt Date: 20140218
  Transmission Date: 20141002
  Serious: Yes (Death, Hospitalization)
  Sender: FDA-Public Use
  Company Number: FR-SA-2014SA015012

PATIENT
  Age: 82 Year
  Sex: 0

DRUGS (1)
  1. LOVENOX [Suspect]
     Indication: PRODUCT USED FOR UNKNOWN INDICATION
     Dosage: 0.6ML
     Route: 065
     Dates: start: 201312

REACTIONS (2)
  - Ventricular fibrillation [Fatal]
  - Retroperitoneal haematoma [Fatal]
